FAERS Safety Report 6435661-9 (Version None)
Quarter: 2009Q4

REPORT INFORMATION
  Report Type: 
  Country: None (occurrence: None)
  Receive Date: 20091110
  Receipt Date: 20080507
  Transmission Date: 20100525
  Serious: No
  Sender: FDA-Public Use
  Company Number: AECAN200800116

PATIENT
  Age: 54 Year
  Sex: Female
  Weight: 70 kg

DRUGS (5)
  1. IMMUNE GLOBULIN INTRAVENOUS (HUMAN) [Suspect]
     Indication: PEMPHIGUS
     Dosage: 1400 ML; TOTAL; IV
     Route: 042
     Dates: start: 20080403, end: 20080404
  2. GAMUNEX [Suspect]
  3. PREDNISONE [Concomitant]
  4. AZATHIOPRINE [Concomitant]
  5. ALENDRONATE SODIUM [Concomitant]

REACTIONS (4)
  - ARTHRALGIA [None]
  - BACK PAIN [None]
  - HAEMOLYTIC ANAEMIA [None]
  - HEADACHE [None]
